FAERS Safety Report 4713092-7 (Version None)
Quarter: 2005Q3

REPORT INFORMATION
  Report Type: 
  Country: None (occurrence: None)
  Receive Date: 20050712
  Receipt Date: 20050712
  Transmission Date: 20060218
  Serious: Yes (Hospitalization)
  Sender: FDA-Public Use
  Company Number: None

PATIENT
  Age: 56 Year
  Sex: Male
  Weight: 153.3 kg

DRUGS (11)
  1. FUROSEMIDE [Suspect]
     Indication: CARDIAC FAILURE CONGESTIVE
     Dosage: ORAL
     Route: 048
     Dates: start: 20050303, end: 20050309
  2. METOLAZONE [Suspect]
  3. LISINOPRIL [Suspect]
  4. ACETAMINOPHEN [Concomitant]
  5. GATIFLOXACIN [Concomitant]
  6. METOLAZONE [Concomitant]
  7. POTASSIUM CHLORIDE [Concomitant]
  8. ATENOLOL [Concomitant]
  9. LISINOPRIL [Concomitant]
  10. IBUPROFEN [Concomitant]
  11. LOVASTATIN [Concomitant]

REACTIONS (3)
  - DEHYDRATION [None]
  - HYPERKALAEMIA [None]
  - RENAL FAILURE ACUTE [None]
